FAERS Safety Report 5881249-8 (Version None)
Quarter: 2008Q3

REPORT INFORMATION
  Report Type: 
  Country: None (occurrence: None)
  Receive Date: 20080912
  Receipt Date: 20080623
  Transmission Date: 20090109
  Serious: No
  Sender: FDA-Public Use
  Company Number: US-ABBOTT-08P-163-0459203-00

PATIENT
  Sex: Female
  Weight: 52.21 kg

DRUGS (7)
  1. HUMIRA [Suspect]
     Indication: CROHN'S DISEASE
     Dosage: 160 MG STARTER DOSE
     Route: 058
     Dates: start: 20080603, end: 20080603
  2. HUMIRA [Suspect]
     Route: 058
  3. HUMIRA [Suspect]
     Route: 058
  4. FOLIC ACID [Concomitant]
     Indication: VITAMIN SUPPLEMENTATION
     Route: 048
  5. TOPAL [Concomitant]
     Indication: HYPERTENSION
     Route: 048
  6. ULTASE [Concomitant]
     Indication: HYPERTENSION
     Route: 048
  7. ACETYLSALICYLIC ACID SRT [Concomitant]
     Indication: CARDIOVASCULAR EVENT PROPHYLAXIS
     Route: 048

REACTIONS (2)
  - ABDOMINAL PAIN UPPER [None]
  - HEADACHE [None]
